FAERS Safety Report 7639858-1 (Version None)
Quarter: 2011Q3

REPORT INFORMATION
  Report Type: 
  Country: None (occurrence: None)
  Receive Date: 20110727
  Receipt Date: 20110718
  Transmission Date: 20111222
  Serious: Yes (Hospitalization)
  Sender: FDA-Public Use
  Company Number: IT-ASTRAZENECA-2011SE42811

PATIENT
  Age: 28131 Day
  Sex: Male

DRUGS (4)
  1. DELORAZEPAM ALTER [Suspect]
     Indication: DRUG ADMINISTRATION ERROR
     Route: 048
     Dates: start: 20110506, end: 20110506
  2. TEGRETOL [Suspect]
     Indication: DRUG ADMINISTRATION ERROR
     Route: 048
     Dates: start: 20110506, end: 20110506
  3. DULOXETINE HYDROCHLORIDE [Suspect]
     Route: 048
     Dates: start: 20110506, end: 20110506
  4. SEROQUEL [Suspect]
     Indication: DRUG ADMINISTRATION ERROR
     Route: 048
     Dates: start: 20110506, end: 20110506

REACTIONS (1)
  - SOPOR [None]
